FAERS Safety Report 14872344 (Version 1)
Quarter: 2018Q2

REPORT INFORMATION
  Report Type: Report from Study
  Country: FR (occurrence: FR)
  Receive Date: 20180510
  Receipt Date: 20180510
  Transmission Date: 20180711
  Serious: Yes (Other)
  Sender: FDA-Public Use
  Company Number: FR-ROCHE-2118929

PATIENT
  Sex: Male

DRUGS (2)
  1. VEMURAFENIB. [Suspect]
     Active Substance: VEMURAFENIB
     Indication: HISTIOCYTOSIS
     Route: 065
     Dates: start: 201608
  2. VEMURAFENIB. [Suspect]
     Active Substance: VEMURAFENIB
     Route: 065

REACTIONS (1)
  - Gynaecomastia [Not Recovered/Not Resolved]
